FAERS Safety Report 20803485 (Version 2)
Quarter: 2022Q2

REPORT INFORMATION
  Report Type: Spontaneous
  Country: CA (occurrence: CA)
  Receive Date: 20220509
  Receipt Date: 20220519
  Transmission Date: 20220720
  Serious: Yes (Hospitalization, Other)
  Sender: FDA-Public Use
  Company Number: CA-TRIS PHARMA, INC.-22CA010200

PATIENT

DRUGS (1)
  1. NEXICLON XR [Suspect]
     Active Substance: CLONIDINE
     Indication: Hypertensive urgency
     Dosage: 0.05 TO 0.2 MG; FOUR TIMES AND THREE TIMES DAILY IF NEEDED

REACTIONS (6)
  - Cerebrovascular accident [Unknown]
  - Acute kidney injury [Unknown]
  - Hypotension [Unknown]
  - Delirium [Unknown]
  - Fall [Unknown]
  - Off label use [Unknown]
